FAERS Safety Report 23655554 (Version 2)
Quarter: 2024Q1

REPORT INFORMATION
  Report Type: Spontaneous
  Country: US (occurrence: US)
  Receive Date: 20240321
  Receipt Date: 20240326
  Transmission Date: 20240410
  Serious: No
  Sender: FDA-Public Use
  Company Number: US-APOTEX-2024AP003451

PATIENT
  Sex: Male

DRUGS (1)
  1. IPRATROPIUM BROMIDE [Suspect]
     Active Substance: IPRATROPIUM BROMIDE\IPRATROPIUM BROMIDE ANHYDROUS
     Indication: Product used for unknown indication
     Dosage: UNK
     Route: 045
     Dates: start: 202402

REACTIONS (3)
  - Product delivery mechanism issue [Unknown]
  - Incorrect dose administered by device [Unknown]
  - Epistaxis [Unknown]

NARRATIVE: CASE EVENT DATE: 20240101
